FAERS Safety Report 9938590 (Version 3)
Quarter: 2014Q2

REPORT INFORMATION
  Report Type: Report from Study
  Country: BR (occurrence: BR)
  Receive Date: 20140303
  Receipt Date: 20140428
  Transmission Date: 20141212
  Serious: Yes (Disabling, Other)
  Sender: FDA-Public Use
  Company Number: BR-ROCHE-1357606

PATIENT
  Age: 39 Year
  Sex: Female
  Weight: 98 kg

DRUGS (4)
  1. ACTEMRA [Suspect]
     Indication: RHEUMATOID ARTHRITIS
     Route: 065
     Dates: start: 20120605
  2. CODEINE [Concomitant]
  3. PARACETAMOL [Concomitant]
  4. FLUOXETIN [Concomitant]

REACTIONS (3)
  - Movement disorder [Unknown]
  - Intervertebral disc protrusion [Unknown]
  - Rheumatoid arthritis [Unknown]
